FAERS Safety Report 23804598 (Version 3)
Quarter: 2024Q3

REPORT INFORMATION
  Report Type: Report from Study
  Country: US (occurrence: US)
  Receive Date: 20240501
  Receipt Date: 20240705
  Transmission Date: 20241017
  Serious: Yes (Hospitalization)
  Sender: JAZZ
  Company Number: US-JAZZ PHARMACEUTICALS-2023-US-021212

PATIENT
  Age: 6 Year
  Sex: Female
  Weight: 26.4 kg

DRUGS (2)
  1. EPIDIOLEX [Suspect]
     Active Substance: CANNABIDIOL
     Indication: Epilepsy
     Dosage: GIVE 2 ML IN THE MORNING AND 3 ML AT NIGHT VIA G-TUBE
  2. EPIDIOLEX [Suspect]
     Active Substance: CANNABIDIOL
     Dosage: 4 MILLILITER IN AM AND 5 ML IN EVE
     Route: 048
     Dates: start: 20200501

REACTIONS (4)
  - Hospitalisation [Unknown]
  - Seizure [Not Recovered/Not Resolved]
  - Intentional product use issue [Unknown]
  - Overdose [Unknown]

NARRATIVE: CASE EVENT DATE: 20200501
